FAERS Safety Report 17444284 (Version 1)
Quarter: 2020Q1

REPORT INFORMATION
  Report Type: Spontaneous
  Country: US (occurrence: US)
  Receive Date: 20200221
  Receipt Date: 20200221
  Transmission Date: 20200409
  Serious: Yes (Life-Threatening)
  Sender: FDA-Public Use
  Company Number: None

PATIENT
  Age: 20 Year
  Sex: Male
  Weight: 60.75 kg

DRUGS (3)
  1. ADDERALL XR [Concomitant]
     Active Substance: AMPHETAMINE ASPARTATE\AMPHETAMINE SULFATE\DEXTROAMPHETAMINE SACCHARATE\DEXTROAMPHETAMINE SULFATE
  2. COLLAGEN [Concomitant]
     Active Substance: COLLAGEN
  3. NEUTROGENA BLACKHEAD ELIMINATING DAILY SCRUB [Suspect]
     Active Substance: SALICYLIC ACID
     Indication: ACNE
     Route: 061
     Dates: start: 20200218, end: 20200220

REACTIONS (6)
  - Tachycardia [None]
  - Erythema [None]
  - Urticaria [None]
  - Dyspnoea [None]
  - Lip swelling [None]
  - Drug hypersensitivity [None]

NARRATIVE: CASE EVENT DATE: 20200220
